FAERS Safety Report 15946163 (Version 1)
Quarter: 2019Q1

REPORT INFORMATION
  Report Type: Spontaneous
  Country: HR (occurrence: HR)
  Receive Date: 20190211
  Receipt Date: 20190211
  Transmission Date: 20190417
  Serious: Yes (Other)
  Sender: FDA-Public Use
  Company Number: HR-JNJFOC-20190212207

PATIENT
  Sex: Male

DRUGS (14)
  1. ATORVASTATIN [Concomitant]
     Active Substance: ATORVASTATIN
     Route: 065
     Dates: start: 201812
  2. METILDIGOXIN [Concomitant]
     Active Substance: METILDIGOXIN
     Route: 065
     Dates: start: 201812
  3. RAMIPRIL. [Concomitant]
     Active Substance: RAMIPRIL
     Route: 065
     Dates: start: 201709
  4. PANTOPRAZOLE [Concomitant]
     Active Substance: PANTOPRAZOLE
     Route: 065
  5. LINAGLIPTIN [Concomitant]
     Active Substance: LINAGLIPTIN
     Route: 065
     Dates: start: 201812
  6. NEBIVOLOL. [Concomitant]
     Active Substance: NEBIVOLOL
     Route: 065
     Dates: start: 201812
  7. XARELTO [Suspect]
     Active Substance: RIVAROXABAN
     Indication: PRODUCT USED FOR UNKNOWN INDICATION
     Route: 048
     Dates: start: 201709
  8. ATORVASTATIN [Concomitant]
     Active Substance: ATORVASTATIN
     Route: 065
     Dates: start: 201709
  9. GLIQUIDONE [Concomitant]
     Active Substance: GLIQUIDONE
     Route: 065
     Dates: start: 201709
  10. CLOPIDOGREL [Concomitant]
     Active Substance: CLOPIDOGREL BISULFATE
     Route: 065
     Dates: start: 201709
  11. NEBIVOLOL. [Concomitant]
     Active Substance: NEBIVOLOL
     Route: 065
     Dates: start: 201709
  12. EPLERENONE. [Concomitant]
     Active Substance: EPLERENONE
     Route: 065
  13. ASPIRIN PROTECT EC [Concomitant]
     Active Substance: ASPIRIN
     Route: 065
  14. FUROSEMIDE. [Concomitant]
     Active Substance: FUROSEMIDE
     Route: 065
     Dates: start: 201812

REACTIONS (2)
  - Angina pectoris [Unknown]
  - Renal cyst [Unknown]

NARRATIVE: CASE EVENT DATE: 201810
